FAERS Safety Report 7184827-1 (Version None)
Quarter: 2010Q4

REPORT INFORMATION
  Report Type: 
  Country: None (occurrence: None)
  Receive Date: 20101123
  Receipt Date: 20100827
  Transmission Date: 20110411
  Serious: No
  Sender: FDA-Public Use
  Company Number: 018038

PATIENT
  Sex: Female
  Weight: 88 kg

DRUGS (7)
  1. CIMZIA [Suspect]
     Indication: CROHN'S DISEASE
     Dosage: (400 MG 1X/MONTH SUBCUTANEOUS)
     Route: 058
     Dates: start: 20100501
  2. CIMZIA [Suspect]
     Indication: RHEUMATOID ARTHRITIS
     Dosage: (400 MG 1X/MONTH SUBCUTANEOUS)
     Route: 058
     Dates: start: 20100501
  3. OMEPRAZOLE [Suspect]
     Indication: RHEUMATOID ARTHRITIS
     Dosage: (20 MG ORAL)
     Route: 048
     Dates: start: 20080101
  4. METHOTREXATE [Concomitant]
  5. GABAPENTIN [Concomitant]
  6. TRAMADOL [Concomitant]
  7. VICODIN [Concomitant]

REACTIONS (3)
  - ASTHMA [None]
  - INFLUENZA LIKE ILLNESS [None]
  - OFF LABEL USE [None]
